FAERS Safety Report 8909243 (Version 1)
Quarter: 2012Q4

REPORT INFORMATION
  Report Type: Spontaneous
  Country: DK (occurrence: None)
  Receive Date: 20121106
  Receipt Date: 20121106
  Transmission Date: 20130627
  Serious: Yes (Hospitalization)
  Sender: FDA-Public Use
  Company Number: 2012MA012817

PATIENT
  Age: 80 Year
  Sex: Male

DRUGS (8)
  1. SPIRONOLACTONE [Suspect]
     Indication: HYPERTENSION ARTERIAL
     Dosage: 1 DF; QD;PO
     Route: 048
     Dates: start: 20120101, end: 20120930
  2. BISOPROLOL FUMARATE AND HYDROCHLOROTHIAZIDE [Suspect]
     Indication: HYPERTENSION ARTERIAL
     Route: 048
     Dates: start: 20120101, end: 20120930
  3. RAMIPRIL [Suspect]
     Indication: HYPERTENSION ARTERIAL
     Route: 048
     Dates: start: 20120101, end: 20120930
  4. FUROSEMIDE (FUROSEMIDE) [Suspect]
     Indication: HYPERTENSION ARTERIAL
     Route: 048
     Dates: start: 20120101, end: 20120930
  5. AMLODIPINE (AMLODIPINE) [Suspect]
     Indication: HYPERTENSION ARTERIAL
     Route: 048
     Dates: start: 20120101, end: 20120930
  6. VENITRIN [Suspect]
     Indication: CHRONIC ISCHEMIC HEART DISEASE, UNSPECIFIED
     Route: 062
     Dates: start: 20120101, end: 20120930
  7. COUMADIN [Concomitant]
  8. LANOXIN [Concomitant]

REACTIONS (3)
  - Syncope [None]
  - Loss of consciousness [None]
  - Hypotension [None]
